FAERS Safety Report 5472161-7 (Version None)
Quarter: 2007Q3

REPORT INFORMATION
  Report Type: 
  Country: None (occurrence: None)
  Receive Date: 20070925
  Receipt Date: 20070919
  Transmission Date: 20080115
  Serious: Yes (Hospitalization)
  Sender: FDA-Public Use
  Company Number: 931 / E2B_00010943

PATIENT
  Age: 78 Year
  Sex: Male

DRUGS (5)
  1. METFORMIN HCL [Suspect]
     Indication: TYPE 2 DIABETES MELLITUS
     Dosage: 2000 MG
     Dates: start: 19950101
  2. MONOPRIL [Concomitant]
  3. ZOCOR [Concomitant]
  4. ASPIRIN [Concomitant]
  5. BLINDED STUDY MEDICATION [Suspect]
     Dates: end: 20060125

REACTIONS (2)
  - ARTHRALGIA [None]
  - FAILURE OF IMPLANT [None]
